FAERS Safety Report 6611479-9 (Version None)
Quarter: 2010Q1

REPORT INFORMATION
  Report Type: 
  Country: None (occurrence: None)
  Receive Date: 20100303
  Receipt Date: 20100217
  Transmission Date: 20100710
  Serious: Yes (Other)
  Sender: FDA-Public Use
  Company Number: PHHY2009MX35897

PATIENT
  Sex: Female

DRUGS (3)
  1. CO-DIOVAN [Suspect]
     Indication: HYPERTENSION
     Dosage: 1 TABLET/ DAY
     Dates: start: 20070115
  2. CO-DIOVAN [Suspect]
     Dosage: 1.5 TABLETS DAILY
     Dates: start: 20080101
  3. CO-DIOVAN [Suspect]
     Dosage: 2 TABLETS/DAY
     Dates: start: 20100115

REACTIONS (7)
  - ARRHYTHMIA [None]
  - ASTHENOPIA [None]
  - EAR PAIN [None]
  - HEADACHE [None]
  - HYPERTENSION [None]
  - MIGRAINE [None]
  - MOOD ALTERED [None]
